FAERS Safety Report 14662260 (Version 1)
Quarter: 2018Q1

REPORT INFORMATION
  Report Type: Other
  Country: DE (occurrence: DE)
  Receive Date: 20180321
  Receipt Date: 20180321
  Transmission Date: 20180509
  Serious: No
  Sender: FDA-Public Use
  Company Number: DE-LUPIN PHARMACEUTICALS INC.-2017-07076

PATIENT
  Age: 48 Year
  Sex: Female

DRUGS (10)
  1. QUETIAPINE. [Suspect]
     Active Substance: QUETIAPINE
     Indication: PRODUCT USED FOR UNKNOWN INDICATION
     Dosage: 450 MG, QD
     Route: 048
     Dates: end: 20170117
  2. QUETIAPINE. [Suspect]
     Active Substance: QUETIAPINE
     Dosage: 750 MG, QD
     Route: 048
     Dates: start: 20170123, end: 20170125
  3. VALPROATE [Suspect]
     Active Substance: VALPROIC ACID
     Indication: PRODUCT USED FOR UNKNOWN INDICATION
     Dosage: 1500 MG, QD
     Route: 048
     Dates: start: 2006, end: 20170120
  4. QUETIAPINE. [Suspect]
     Active Substance: QUETIAPINE
     Dosage: 600 MG, QD
     Route: 048
     Dates: start: 20170126, end: 20170204
  5. VALPROATE [Suspect]
     Active Substance: VALPROIC ACID
     Dosage: 2000 MG, QD
     Route: 048
     Dates: start: 20170121, end: 20170203
  6. ARIPIPRAZOLE. [Suspect]
     Active Substance: ARIPIPRAZOLE
     Indication: PRODUCT USED FOR UNKNOWN INDICATION
     Dosage: 10 MG, QD IN THE MORNING
     Route: 065
  7. CARBAMAZEPINE. [Concomitant]
     Active Substance: CARBAMAZEPINE
     Indication: PRODUCT USED FOR UNKNOWN INDICATION
     Dosage: UNK
     Route: 065
  8. QUETIAPINE. [Suspect]
     Active Substance: QUETIAPINE
     Dosage: 450 MG, QD
     Route: 048
     Dates: start: 20170205, end: 20170212
  9. QUETIAPINE. [Suspect]
     Active Substance: QUETIAPINE
     Dosage: 600 MG, QD
     Route: 048
     Dates: start: 20170118, end: 20170122
  10. VALPROATE [Suspect]
     Active Substance: VALPROIC ACID
     Dosage: 1750 MG, QD
     Route: 048
     Dates: start: 20170203

REACTIONS (3)
  - Initial insomnia [Unknown]
  - Sleep disorder [Unknown]
  - Underdose [Unknown]
